FAERS Safety Report 8496528-8 (Version None)
Quarter: 2012Q3

REPORT INFORMATION
  Report Type: 
  Country: None (occurrence: None)
  Receive Date: 20120709
  Receipt Date: 20120705
  Transmission Date: 20120928
  Serious: Yes (Death)
  Sender: FDA-Public Use
  Company Number: JP-B.I. PHARMACEUTICALS,INC./RIDGEFIELD-2012-BP-14204NB

PATIENT
  Age: 66 Year
  Sex: Female

DRUGS (7)
  1. CYTOTEC [Suspect]
     Route: 065
  2. FENTANYL-100 [Suspect]
     Route: 065
  3. PROCHLORPERAZINE [Suspect]
     Route: 065
  4. CEFOTIAM HYDROCHLORIDE [Suspect]
     Route: 065
  5. MOBIC [Suspect]
     Route: 048
     Dates: start: 20110801, end: 20110801
  6. NAPROXEN [Suspect]
     Route: 065
  7. SUTENT [Suspect]
     Route: 065

REACTIONS (1)
  - TOXIC EPIDERMAL NECROLYSIS [None]
